FAERS Safety Report 20836378 (Version 1)
Quarter: 2022Q2

REPORT INFORMATION
  Report Type: Spontaneous
  Country: US (occurrence: US)
  Receive Date: 20220517
  Receipt Date: 20220517
  Transmission Date: 20220720
  Serious: No
  Sender: FDA-Public Use
  Company Number: US-BRISTOL-MYERS SQUIBB COMPANY-2022-023899

PATIENT
  Age: 69 Year
  Sex: Male

DRUGS (12)
  1. REVLIMID [Suspect]
     Active Substance: LENALIDOMIDE
     Indication: Plasma cell myeloma
     Dosage: TAKE 1 CAPSULE DAILY FOR 14 DAYS THEN OFF FOR 7 DAYS OF A 21 DAY CYCLE
     Route: 048
     Dates: start: 20211201, end: 202204
  2. ACYCLOVIR TAB [Concomitant]
     Indication: Product used for unknown indication
  3. ARMODAFINIL TAB [Concomitant]
     Indication: Product used for unknown indication
  4. ATORVASTATIN [Concomitant]
     Active Substance: ATORVASTATIN
     Indication: Product used for unknown indication
  5. CLARITIN TAB [Concomitant]
     Indication: Product used for unknown indication
  6. DEXAMETHASON TAB [Concomitant]
     Indication: Product used for unknown indication
  7. ISOSORB MONO TAB [Concomitant]
     Indication: Product used for unknown indication
  8. LISINOPRIL [Concomitant]
     Active Substance: LISINOPRIL
     Indication: Product used for unknown indication
  9. MELOXICAM TAB [Concomitant]
     Indication: Product used for unknown indication
  10. OMEPRAZOLE [Concomitant]
     Active Substance: OMEPRAZOLE
     Indication: Product used for unknown indication
  11. VITAMIN D CHW [Concomitant]
     Indication: Product used for unknown indication
  12. ZOLEDRONIC ACID [Concomitant]
     Active Substance: ZOLEDRONIC ACID
     Indication: Product used for unknown indication

REACTIONS (1)
  - Hypersensitivity [Unknown]
